FAERS Safety Report 19980912 (Version 2)
Quarter: 2021Q4

REPORT INFORMATION
  Report Type: Report from Study
  Country: AR (occurrence: None)
  Receive Date: 20211021
  Receipt Date: 20211123
  Transmission Date: 20220303
  Serious: Yes (Hospitalization)
  Sender: FDA-Public Use
  Company Number: AR-EISAI MEDICAL RESEARCH-EC-2021-089073

PATIENT
  Age: 69 Year
  Sex: Male
  Weight: 68.9 kg

DRUGS (17)
  1. LENVATINIB [Suspect]
     Active Substance: LENVATINIB
     Indication: Non-small cell lung cancer metastatic
     Dosage: STARTING DOSE AT 20 MILLIGRAM, FLUCTUATED DOSAGE
     Route: 048
     Dates: start: 20201216, end: 20210217
  2. LENVATINIB [Suspect]
     Active Substance: LENVATINIB
     Route: 048
     Dates: start: 20210218, end: 20210301
  3. LENVATINIB [Suspect]
     Active Substance: LENVATINIB
     Dosage: STARTING DOSE AT 14 MILLIGRAM, FLUCTUATED DOSAGE
     Route: 048
     Dates: start: 20210415
  4. PEMBROLIZUMAB [Suspect]
     Active Substance: PEMBROLIZUMAB
     Indication: Non-small cell lung cancer metastatic
     Route: 041
     Dates: start: 20201216, end: 20210126
  5. PEMBROLIZUMAB [Suspect]
     Active Substance: PEMBROLIZUMAB
     Route: 041
     Dates: start: 20210218, end: 20210218
  6. PEMBROLIZUMAB [Suspect]
     Active Substance: PEMBROLIZUMAB
     Route: 041
     Dates: start: 20210415
  7. ATORVASTATIN [Concomitant]
     Active Substance: ATORVASTATIN
     Dates: start: 20201231
  8. CILOSTAZOL [Concomitant]
     Active Substance: CILOSTAZOL
     Dates: start: 201001, end: 20210512
  9. EZETIMIBE [Concomitant]
     Active Substance: EZETIMIBE
     Dates: start: 201001, end: 20210512
  10. ZOLEDRONIC ACID [Concomitant]
     Active Substance: ZOLEDRONIC ACID
     Dates: start: 20191031
  11. CALCIUM;VITAMIN D NOS [Concomitant]
     Dates: start: 201910, end: 20210512
  12. METHADONE HYDROCHLORIDE [Concomitant]
     Active Substance: METHADONE HYDROCHLORIDE
     Dates: start: 202008
  13. PREGABALIN [Concomitant]
     Active Substance: PREGABALIN
     Dates: start: 20200105, end: 20200405
  14. IBUPROFEN [Concomitant]
     Active Substance: IBUPROFEN
     Dates: start: 202011
  15. LEVOTHYROXINE SODIUM [Concomitant]
     Active Substance: LEVOTHYROXINE SODIUM
     Dates: start: 20210113, end: 20210617
  16. METOCLOPRAMIDE [Concomitant]
     Active Substance: METOCLOPRAMIDE
     Dates: start: 20201217, end: 20210228
  17. NEBIVOLOL [Concomitant]
     Active Substance: NEBIVOLOL
     Dates: start: 20210127, end: 20210510

REACTIONS (1)
  - Cholecystitis [Recovered/Resolved]

NARRATIVE: CASE EVENT DATE: 20210301
